FAERS Safety Report 6294689-2 (Version None)
Quarter: 2009Q3

REPORT INFORMATION
  Report Type: 
  Country: None (occurrence: None)
  Receive Date: 20090803
  Receipt Date: 20090729
  Transmission Date: 20100115
  Serious: Yes (Hospitalization)
  Sender: FDA-Public Use
  Company Number: A0799415A

PATIENT
  Age: 60 Year
  Sex: Female
  Weight: 72.7 kg

DRUGS (10)
  1. ADVAIR HFA [Suspect]
     Indication: DRUG USE FOR UNKNOWN INDICATION
     Dosage: 2ACTU TWICE PER DAY
     Route: 065
  2. SALBUTAMOL [Suspect]
     Indication: DRUG USE FOR UNKNOWN INDICATION
     Dosage: 2ACTU FOUR TIMES PER DAY
     Route: 065
  3. AERIUS [Concomitant]
     Route: 065
  4. IPRATROPIUM BROMIDE [Concomitant]
     Route: 065
  5. LIPITOR [Concomitant]
     Route: 065
  6. PARIET [Concomitant]
     Route: 065
  7. PREDNISONE [Concomitant]
     Route: 065
  8. SINGULAIR [Concomitant]
     Route: 065
  9. TUMS [Concomitant]
     Route: 065
  10. TYLENOL (CAPLET) [Concomitant]
     Route: 065

REACTIONS (4)
  - COUGH [None]
  - INCONTINENCE [None]
  - PHARYNGEAL OEDEMA [None]
  - VOMITING [None]
